FAERS Safety Report 5992029-7 (Version None)
Quarter: 2008Q4

REPORT INFORMATION
  Report Type: 
  Country: None (occurrence: None)
  Receive Date: 20081211
  Receipt Date: 20080511
  Transmission Date: 20090506
  Serious: No
  Sender: FDA-Public Use
  Company Number: US-AMGEN-KDL278516

PATIENT
  Sex: Female

DRUGS (2)
  1. ENBREL [Suspect]
     Indication: RHEUMATOID ARTHRITIS
     Route: 058
     Dates: start: 20080418
  2. METHOTREXATE [Concomitant]
     Route: 058

REACTIONS (9)
  - CHILLS [None]
  - CONJUNCTIVITIS INFECTIVE [None]
  - DIZZINESS [None]
  - HYPERSENSITIVITY [None]
  - NASAL CONGESTION [None]
  - PRODUCTIVE COUGH [None]
  - PYREXIA [None]
  - RESPIRATORY TRACT CONGESTION [None]
  - RHINORRHOEA [None]
